FAERS Safety Report 8001659-2 (Version None)
Quarter: 2011Q4

REPORT INFORMATION
  Report Type: 
  Country: None (occurrence: None)
  Receive Date: 20111222
  Receipt Date: 20111215
  Transmission Date: 20120403
  Serious: Yes (Hospitalization, Other)
  Sender: FDA-Public Use
  Company Number: US-BAYER-2011-031349

PATIENT
  Age: 48 Year
  Sex: Female
  Weight: 68.027 kg

DRUGS (9)
  1. MEDROL [Concomitant]
  2. YAZ [Suspect]
     Indication: CONTRACEPTION
     Dosage: UNK
     Dates: start: 20070501, end: 20090301
  3. KEFLEX [Concomitant]
  4. ZOFRAN [Concomitant]
  5. PHENERGAN [Concomitant]
  6. LORCET-HD [Concomitant]
  7. YAZ [Suspect]
     Indication: MENSTRUAL CYCLE MANAGEMENT
     Dosage: UNK
     Dates: start: 20100601, end: 20101001
  8. DROSPIRENONE AND ETHINYL ESTRADIOL [Suspect]
     Indication: CONTRACEPTION
     Dosage: UNK
     Dates: start: 20090701, end: 20100401
  9. DROSPIRENONE AND ETHINYL ESTRADIOL [Suspect]
     Indication: MENSTRUAL CYCLE MANAGEMENT

REACTIONS (7)
  - CHOLECYSTITIS ACUTE [None]
  - OEDEMA PERIPHERAL [None]
  - ABDOMINAL PAIN [None]
  - CELLULITIS [None]
  - VEIN DISORDER [None]
  - PAIN IN EXTREMITY [None]
  - CHOLELITHIASIS [None]
